FAERS Safety Report 5126392-6 (Version None)
Quarter: 2006Q3

REPORT INFORMATION
  Report Type: 
  Country: None (occurrence: None)
  Receive Date: 20060830
  Receipt Date: 20060306
  Transmission Date: 20061208
  Serious: Yes (Life-Threatening, Hospitalization)
  Sender: FDA-Public Use
  Company Number: 200610538BWH

PATIENT
  Age: 71 Year
  Sex: Male

DRUGS (2)
  1. TRASYLOL [Suspect]
     Indication: CORONARY ARTERY BYPASS
     Dosage: 1 ML, ONCE, INTRAVENOUS
     Route: 042
     Dates: start: 20060126
  2. ANAESTHESIA [Concomitant]

REACTIONS (3)
  - ANAPHYLACTIC REACTION [None]
  - BLOOD PRESSURE DECREASED [None]
  - HYPERSENSITIVITY [None]
